FAERS Safety Report 24789734 (Version 1)
Quarter: 2024Q4

REPORT INFORMATION
  Report Type: Spontaneous
  Country: GB (occurrence: GB)
  Receive Date: 20241230
  Receipt Date: 20241230
  Transmission Date: 20250115
  Serious: Yes (Hospitalization)
  Sender: MYLAN
  Company Number: GB-MYLANLABS-2024M1062936

PATIENT
  Sex: Male
  Weight: 124.4 kg

DRUGS (4)
  1. CLOZARIL [Suspect]
     Active Substance: CLOZAPINE
     Indication: Schizophrenia
     Dosage: 225 MILLIGRAM, PM (AT NIGHT)
     Route: 048
     Dates: start: 20231113, end: 20240626
  2. CARIPRAZINE [Concomitant]
     Active Substance: CARIPRAZINE
     Indication: Negative symptoms in schizophrenia
     Dosage: 3 MILLIGRAM, AM (IN THE MORNING)
     Route: 048
     Dates: start: 20240313, end: 20240705
  3. CHOLECALCIFEROL [Concomitant]
     Active Substance: CHOLECALCIFEROL
     Dosage: UNK, QD (800 UNITS, QD)
     Route: 048
  4. SENNA [Concomitant]
     Active Substance: SENNA LEAF\SENNOSIDES\SENNOSIDES A AND B
     Indication: Constipation prophylaxis
     Dosage: 7.5 MILLIGRAM, PM (AT NIGHT)
     Route: 048
     Dates: start: 202311, end: 20240630

REACTIONS (6)
  - Schizophrenia [Unknown]
  - Salivary hypersecretion [Recovered/Resolved]
  - Sedation [Recovered/Resolved]
  - Weight increased [Not Recovered/Not Resolved]
  - Liver function test increased [Recovering/Resolving]
  - Blood cholesterol increased [Recovering/Resolving]

NARRATIVE: CASE EVENT DATE: 20231101
